FAERS Safety Report 7235877-8 (Version None)
Quarter: 2011Q1

REPORT INFORMATION
  Report Type: 
  Country: None (occurrence: None)
  Receive Date: 20110120
  Receipt Date: 20110112
  Transmission Date: 20110831
  Serious: Yes (Other)
  Sender: FDA-Public Use
  Company Number: BR-ROCHE-753341

PATIENT
  Sex: Female
  Weight: 62 kg

DRUGS (4)
  1. RIBAVIRIN [Concomitant]
  2. ENDOFOLIN [Concomitant]
     Indication: VITAMIN SUPPLEMENTATION
  3. BENERVA [Concomitant]
     Indication: VITAMIN SUPPLEMENTATION
  4. PEGINTERFERON ALFA-2A [Suspect]
     Indication: HEPATITIS C
     Route: 058
     Dates: start: 20100525

REACTIONS (6)
  - PAIN [None]
  - AMNESIA [None]
  - HYPOTHYROIDISM [None]
  - CATARACT [None]
  - FATIGUE [None]
  - IMMUNODEFICIENCY [None]
